FAERS Safety Report 14011133 (Version 5)
Quarter: 2018Q1

REPORT INFORMATION
  Report Type: Spontaneous
  Country: JP (occurrence: JP)
  Receive Date: 20170926
  Receipt Date: 20180125
  Transmission Date: 20180508
  Serious: Yes (Life-Threatening, Other)
  Sender: FDA-Public Use
  Company Number: JP-ASTELLAS-2017JP018450AA

PATIENT
  Age: 35 Year
  Sex: Female

DRUGS (66)
  1. LANSOPRAZOLE. [Concomitant]
     Active Substance: LANSOPRAZOLE
     Indication: PRODUCT USED FOR UNKNOWN INDICATION
     Dosage: 30 MG, ONCE DAILY AFTER BREAKFAST
     Route: 065
     Dates: start: 20170215
  2. PREDNISOLONE. [Concomitant]
     Active Substance: PREDNISOLONE
     Indication: PRODUCT USED FOR UNKNOWN INDICATION
     Dosage: 3.5 G, ONCE DAILY AFTER BREAKFAST
     Route: 065
     Dates: start: 20170220
  3. METHYLPREDNISOLONE. [Concomitant]
     Active Substance: METHYLPREDNISOLONE
     Indication: PRODUCT USED FOR UNKNOWN INDICATION
     Route: 041
     Dates: start: 20170213, end: 20170213
  4. GLUCOSE                            /00203503/ [Concomitant]
     Route: 041
     Dates: start: 20170220, end: 20170220
  5. GLUCOSE                            /00203503/ [Concomitant]
     Route: 041
     Dates: start: 20170221, end: 20170222
  6. ISOTONIC SODIUM CHLORIDE SOLUTION [Concomitant]
     Active Substance: SODIUM CHLORIDE
     Indication: PRODUCT USED FOR UNKNOWN INDICATION
     Route: 042
     Dates: start: 20170223
  7. URSODEOXYCHOL [Concomitant]
     Indication: PRODUCT USED FOR UNKNOWN INDICATION
     Dosage: 200 MG, THRICE DAILY AFTER EACH MEAL
     Route: 065
     Dates: start: 20170220
  8. FLUMARIN                           /00963302/ [Concomitant]
     Active Substance: FLOMOXEF SODIUM
     Route: 041
     Dates: start: 20170214, end: 20170218
  9. SOLDEM 1 [Concomitant]
     Active Substance: DEXTROSE\SODIUM CHLORIDE\SODIUM LACTATE
     Indication: PRODUCT USED FOR UNKNOWN INDICATION
     Route: 041
     Dates: start: 20170213, end: 20170213
  10. TATHION [Concomitant]
     Active Substance: GLUTATHIONE
     Indication: PRODUCT USED FOR UNKNOWN INDICATION
     Route: 041
     Dates: start: 20170220, end: 20170222
  11. SANGLOPOR [Concomitant]
     Active Substance: HUMAN IMMUNOGLOBULIN G
     Indication: PRODUCT USED FOR UNKNOWN INDICATION
     Route: 041
     Dates: start: 20170221, end: 20170222
  12. DIPRIVAN [Concomitant]
     Active Substance: PROPOFOL
     Route: 041
     Dates: start: 20170223, end: 20170223
  13. FUNGUARD [Concomitant]
     Active Substance: MICAFUNGIN SODIUM
     Indication: BLOOD BETA-D-GLUCAN INCREASED
     Route: 065
     Dates: start: 20170227
  14. BICANATE [Concomitant]
     Route: 041
     Dates: start: 20170214, end: 20170214
  15. GLUCOSE                            /00203503/ [Concomitant]
     Route: 041
     Dates: start: 20170223, end: 20170223
  16. SOLDEM 3AG [Concomitant]
     Route: 041
     Dates: start: 20170221, end: 20170221
  17. FOY [Concomitant]
     Active Substance: GABEXATE MESYLATE
     Indication: PRODUCT USED FOR UNKNOWN INDICATION
     Route: 041
     Dates: start: 20170220, end: 20170220
  18. STRONGER NEO-MINOPHAGEN C [Concomitant]
     Active Substance: AMMONIUM GLYCYRRHIZATE\CYSTEINE HYDROCHLORIDE\GLYCINE
     Indication: PRODUCT USED FOR UNKNOWN INDICATION
     Route: 041
     Dates: start: 20170220, end: 20170222
  19. ISOTONIC SODIUM CHLORIDE SOLUTION [Concomitant]
     Active Substance: SODIUM CHLORIDE
     Indication: PRODUCT USED FOR UNKNOWN INDICATION
     Route: 065
     Dates: start: 20170221, end: 20170221
  20. ELASPOL [Concomitant]
     Active Substance: SIVELESTAT SODIUM
     Indication: PRODUCT USED FOR UNKNOWN INDICATION
     Route: 041
     Dates: start: 20170221, end: 20170223
  21. BICANATE [Concomitant]
     Route: 041
     Dates: start: 20170216, end: 20170218
  22. BICANATE [Concomitant]
     Route: 041
     Dates: start: 20170219, end: 20170219
  23. BICANATE [Concomitant]
     Route: 041
     Dates: start: 20170219, end: 20170222
  24. FLUMARIN                           /00963302/ [Concomitant]
     Active Substance: FLOMOXEF SODIUM
     Indication: BACTERIAL INFECTION
     Dosage: 1 G, 5 TIMES DAILY
     Route: 041
     Dates: start: 20170213, end: 20170213
  25. TAKEPRON [Concomitant]
     Active Substance: LANSOPRAZOLE
     Indication: PRODUCT USED FOR UNKNOWN INDICATION
     Route: 042
     Dates: start: 20170213, end: 20170215
  26. GLUCOSE                            /00203503/ [Concomitant]
     Indication: PRODUCT USED FOR UNKNOWN INDICATION
     Route: 041
     Dates: start: 20170213, end: 20170213
  27. GLUCOSE                            /00203503/ [Concomitant]
     Route: 041
     Dates: start: 20170223, end: 20170223
  28. PRECEDEX [Concomitant]
     Active Substance: DEXMEDETOMIDINE HYDROCHLORIDE
     Indication: PRODUCT USED FOR UNKNOWN INDICATION
     Route: 041
     Dates: start: 20170214, end: 20170214
  29. FAMOTIDINE. [Concomitant]
     Active Substance: FAMOTIDINE
     Indication: PRODUCT USED FOR UNKNOWN INDICATION
     Dosage: 20 MG, TWICE DAILY AFTER BREAKFAST AND SUPPER
     Route: 065
     Dates: start: 20170219
  30. URSODEOXYCHOL [Concomitant]
     Dosage: 200 MG, THRICE DAILY AFTER EACH MEAL
     Route: 065
     Dates: start: 20170412
  31. BICANATE [Concomitant]
     Route: 041
     Dates: start: 20170214, end: 20170215
  32. FLUMARIN                           /00963302/ [Concomitant]
     Active Substance: FLOMOXEF SODIUM
     Route: 041
     Dates: start: 20170213, end: 20170213
  33. METHYLPREDNISOLONE. [Concomitant]
     Active Substance: METHYLPREDNISOLONE
     Route: 041
     Dates: start: 20170214, end: 20170216
  34. METHYLPREDNISOLONE. [Concomitant]
     Active Substance: METHYLPREDNISOLONE
     Route: 041
     Dates: start: 20170220, end: 20170220
  35. GLUCOSE                            /00203503/ [Concomitant]
     Indication: PRODUCT USED FOR UNKNOWN INDICATION
     Route: 041
     Dates: start: 20170214, end: 20170215
  36. MIDAZOLAM [Concomitant]
     Active Substance: MIDAZOLAM HYDROCHLORIDE
     Indication: PRODUCT USED FOR UNKNOWN INDICATION
     Route: 041
     Dates: start: 20170221
  37. MEROPEN                            /01250502/ [Concomitant]
     Active Substance: MEROPENEM
     Dosage: 0.5 G, TWICE DAILY
     Route: 041
     Dates: start: 20170222, end: 20170222
  38. ISOTONIC SODIUM CHLORIDE SOLUTION [Concomitant]
     Active Substance: SODIUM CHLORIDE
     Route: 065
     Dates: start: 20170223
  39. CICLOSPORIN [Concomitant]
     Active Substance: CYCLOSPORINE
     Indication: LIVER TRANSPLANT
     Dosage: UNK UNK, UNKNOWN FREQ.
     Route: 065
     Dates: start: 20170221
  40. GASTER [Concomitant]
     Active Substance: FAMOTIDINE
     Indication: PRODUCT USED FOR UNKNOWN INDICATION
     Route: 042
     Dates: start: 20170223
  41. CELLCEPT [Concomitant]
     Active Substance: MYCOPHENOLATE MOFETIL\MYCOPHENOLATE MOFETIL HYDROCHLORIDE
     Route: 065
     Dates: start: 20170225, end: 20170227
  42. CELLCEPT [Concomitant]
     Active Substance: MYCOPHENOLATE MOFETIL\MYCOPHENOLATE MOFETIL HYDROCHLORIDE
     Dosage: 250 MG, THRICE DAILY AFTER EACH MEAL
     Route: 065
     Dates: start: 20170412
  43. PIARLE [Concomitant]
     Indication: PRODUCT USED FOR UNKNOWN INDICATION
     Dosage: 60 ML, THRICE DAILY AFTER EACH MEAL
     Route: 065
     Dates: start: 20170217
  44. SOLDEM 3AG [Concomitant]
     Indication: PRODUCT USED FOR UNKNOWN INDICATION
     Route: 041
     Dates: start: 20170216, end: 20170219
  45. SOLDEM 3AG [Concomitant]
     Route: 041
     Dates: start: 20170223, end: 20170224
  46. HANP [Concomitant]
     Active Substance: CARPERITIDE
     Indication: PRODUCT USED FOR UNKNOWN INDICATION
     Route: 041
     Dates: start: 20170219, end: 20170219
  47. HANP [Concomitant]
     Active Substance: CARPERITIDE
     Route: 041
     Dates: start: 20170221, end: 20170221
  48. MEROPEN                            /01250502/ [Concomitant]
     Active Substance: MEROPENEM
     Dosage: 0.5 G, 4 TIMES DAILY
     Route: 041
     Dates: start: 20170223
  49. ISOTONIC SODIUM CHLORIDE SOLUTION [Concomitant]
     Active Substance: SODIUM CHLORIDE
     Indication: PRODUCT USED FOR UNKNOWN INDICATION
     Route: 041
     Dates: start: 20170221
  50. NEOLAMIN 3B                        /00721401/ [Concomitant]
     Indication: PRODUCT USED FOR UNKNOWN INDICATION
     Route: 041
     Dates: start: 20170223
  51. PROGRAF [Suspect]
     Active Substance: TACROLIMUS\TACROLIMUS ANHYDROUS
     Indication: LIVER TRANSPLANT
     Dosage: 1 MG, TWICE DAILY, AFTER BREAKFAST AND SUPPER
     Route: 065
     Dates: start: 20170212, end: 20170221
  52. CELLCEPT [Concomitant]
     Active Substance: MYCOPHENOLATE MOFETIL\MYCOPHENOLATE MOFETIL HYDROCHLORIDE
     Indication: PRODUCT USED FOR UNKNOWN INDICATION
     Dosage: 250 MG, THRICE DAILY AFTER EACH MEAL
     Route: 065
     Dates: start: 20170214
  53. GLYCERIN                           /00200601/ [Concomitant]
     Active Substance: GLYCERIN
     Indication: PRODUCT USED FOR UNKNOWN INDICATION
     Dosage: 1 UNIT, AS NEEDED
     Route: 054
     Dates: start: 20170217
  54. BICANATE [Concomitant]
     Indication: PRODUCT USED FOR UNKNOWN INDICATION
     Route: 041
     Dates: start: 20170213, end: 20170213
  55. METHYLPREDNISOLONE. [Concomitant]
     Active Substance: METHYLPREDNISOLONE
     Route: 041
     Dates: start: 20170217, end: 20170219
  56. ATARAX-P                           /00058402/ [Concomitant]
     Active Substance: HYDROXYZINE HYDROCHLORIDE
     Indication: PRODUCT USED FOR UNKNOWN INDICATION
     Route: 041
     Dates: start: 20170214, end: 20170215
  57. SOLDEM 3AG [Concomitant]
     Route: 041
     Dates: start: 20170220, end: 20170220
  58. ADELAVIN NO.9 [Concomitant]
     Indication: PRODUCT USED FOR UNKNOWN INDICATION
     Route: 041
     Dates: start: 20170220, end: 20170222
  59. DIPRIVAN [Concomitant]
     Active Substance: PROPOFOL
     Route: 041
     Dates: start: 20170224, end: 20170224
  60. MEROPEN                            /01250502/ [Concomitant]
     Active Substance: MEROPENEM
     Indication: PRODUCT USED FOR UNKNOWN INDICATION
     Dosage: 0.5 G, ONCE DAILY
     Route: 041
     Dates: start: 20170221, end: 20170221
  61. ISOTONIC SODIUM CHLORIDE SOLUTION [Concomitant]
     Active Substance: SODIUM CHLORIDE
     Route: 065
     Dates: start: 20170222, end: 20170222
  62. BICANATE [Concomitant]
     Route: 041
     Dates: start: 20170216, end: 20170217
  63. INOVAN                             /00360702/ [Concomitant]
     Active Substance: DOPAMINE HYDROCHLORIDE
     Indication: PRODUCT USED FOR UNKNOWN INDICATION
     Route: 041
     Dates: start: 20170214, end: 20170215
  64. ALINAMIN F                         /00257801/ [Concomitant]
     Indication: PRODUCT USED FOR UNKNOWN INDICATION
     Route: 041
     Dates: start: 20170215, end: 20170219
  65. SOLDEM 3AG [Concomitant]
     Route: 041
     Dates: start: 20170222, end: 20170222
  66. DIPRIVAN [Concomitant]
     Active Substance: PROPOFOL
     Indication: PRODUCT USED FOR UNKNOWN INDICATION
     Route: 041
     Dates: start: 20170221, end: 20170222

REACTIONS (2)
  - Bacterial infection [Unknown]
  - Thrombotic microangiopathy [Recovered/Resolved]

NARRATIVE: CASE EVENT DATE: 20170218
